FAERS Safety Report 4673153-8 (Version None)
Quarter: 2005Q2

REPORT INFORMATION
  Report Type: 
  Country: None (occurrence: None)
  Receive Date: 20050524
  Receipt Date: 20050524
  Transmission Date: 20051028
  Serious: Yes (Other)
  Sender: FDA-Public Use
  Company Number: None

PATIENT
  Age: 50 Year
  Sex: Male
  Weight: 95.2554 kg

DRUGS (2)
  1. LIPITOR [Suspect]
     Indication: BLOOD CHOLESTEROL INCREASED
     Dosage: 10MG DAY ORAL
     Route: 048
     Dates: start: 19970101, end: 20040215
  2. TRICOR [Suspect]
     Indication: BLOOD TRIGLYCERIDES INCREASED
     Dosage: 80MG  DAY ORAL
     Route: 048
     Dates: start: 20031115, end: 20040215

REACTIONS (3)
  - ASTHENIA [None]
  - DECREASED ACTIVITY [None]
  - PAIN IN EXTREMITY [None]
